FAERS Safety Report 17715000 (Version 2)
Quarter: 2021Q3

REPORT INFORMATION
  Report Type: Spontaneous
  Country: US (occurrence: US)
  Receive Date: 20200427
  Receipt Date: 20210705
  Transmission Date: 20211014
  Serious: Yes (Death, Hospitalization, Other)
  Sender: FDA-Public Use
  Company Number: US-TEVA-2020-US-1227454

PATIENT
  Age: 68 Year
  Sex: Male
  Weight: 122.58 kg

DRUGS (17)
  1. VALSARTAN NOVARTIS [Suspect]
     Active Substance: VALSARTAN
     Indication: HYPERTENSION
     Route: 065
     Dates: start: 20170801, end: 20171030
  2. VALSARTAN AUROBINDO [Suspect]
     Active Substance: VALSARTAN
     Indication: HYPERTENSION
     Route: 065
     Dates: start: 20160808, end: 20170821
  3. TRAMADOL. [Concomitant]
     Active Substance: TRAMADOL
     Indication: PAIN
     Dosage: EVERY 12 HOURS AS NEEDED
     Route: 065
     Dates: start: 20100723, end: 20200515
  4. VALSARTAN AUROBINDO [Suspect]
     Active Substance: VALSARTAN
     Route: 065
     Dates: start: 20180920, end: 20180920
  5. FUROSEMIDE. [Concomitant]
     Active Substance: FUROSEMIDE
     Indication: CARDIAC FAILURE CONGESTIVE
     Route: 065
     Dates: start: 20130516, end: 20200515
  6. METOPROLOL. [Concomitant]
     Active Substance: METOPROLOL
     Indication: HYPERTENSION
     Route: 065
     Dates: start: 20160213, end: 20200515
  7. SIMVASTATIN. [Concomitant]
     Active Substance: SIMVASTATIN
     Route: 048
  8. MELOXICAM. [Concomitant]
     Active Substance: MELOXICAM
     Indication: PAIN
     Route: 065
     Dates: start: 20130212, end: 20200515
  9. ISOSORBIDE DINITRATE. [Concomitant]
     Active Substance: ISOSORBIDE DINITRATE
     Route: 048
  10. VALSARTAN TORRENT [Suspect]
     Active Substance: VALSARTAN
     Route: 065
     Dates: start: 20150923, end: 20150923
  11. VALSARTAN. [Suspect]
     Active Substance: VALSARTAN
     Indication: HYPERTENSION
     Route: 065
     Dates: start: 20130301, end: 20180707
  12. VALSARTAN AUROBINDO [Suspect]
     Active Substance: VALSARTAN
     Route: 065
     Dates: start: 20180627, end: 20181219
  13. TRAMADOL. [Concomitant]
     Active Substance: TRAMADOL
     Dosage: 37.5?325 MG, 2 TABLET(S) EVERY 12 HOURS
     Route: 048
  14. VALSARTAN APHENA [Suspect]
     Active Substance: VALSARTAN
     Indication: HYPERTENSION
     Route: 065
     Dates: start: 20170801, end: 20171030
  15. VALSARTAN SOLCO [Suspect]
     Active Substance: VALSARTAN
     Indication: HYPERTENSION
     Route: 065
     Dates: start: 20150923, end: 20160721
  16. VALSARTAN AUROBINDO [Suspect]
     Active Substance: VALSARTAN
     Route: 065
     Dates: start: 20171012, end: 20180409
  17. TADALAFIL. [Concomitant]
     Active Substance: TADALAFIL
     Route: 048

REACTIONS (9)
  - Coronary artery disease [Fatal]
  - Sepsis [Fatal]
  - Pancreatic carcinoma metastatic [Fatal]
  - Metastases to heart [Fatal]
  - Ascites [Unknown]
  - Cholelithiasis [Unknown]
  - Metastases to liver [Fatal]
  - Metastases to peritoneum [Fatal]
  - Renal failure [Fatal]
